FAERS Safety Report 4939070-0 (Version None)
Quarter: 2006Q1

REPORT INFORMATION
  Report Type: 
  Country: None (occurrence: None)
  Receive Date: 20060309
  Receipt Date: 20050930
  Transmission Date: 20060701
  Serious: Yes (Hospitalization)
  Sender: FDA-Public Use
  Company Number: US-MERCK-0510USA01367

PATIENT
  Age: 42 Year
  Sex: Female
  Weight: 108 kg

DRUGS (4)
  1. VIOXX [Suspect]
     Indication: ARTHRITIS
     Route: 048
     Dates: start: 19990501, end: 20040930
  2. VIOXX [Suspect]
     Route: 065
     Dates: start: 20020101
  3. VIOXX [Suspect]
     Route: 065
     Dates: start: 20030101
  4. VIOXX [Suspect]
     Route: 065
     Dates: start: 20040101

REACTIONS (6)
  - CEREBROVASCULAR ACCIDENT [None]
  - CHEST PAIN [None]
  - EMOTIONAL DISORDER [None]
  - LYMPHADENOPATHY [None]
  - NEOPLASM [None]
  - THROMBOSIS [None]
